FAERS Safety Report 7077672 (Version 2)
Quarter: 2014Q3

REPORT INFORMATION
  Report Type: Spontaneous
  Country: US (occurrence: None)
  Receive Date: 20090803
  Receipt Date: 20140916
  Transmission Date: 20150326
  Serious: Yes (Hospitalization, Other)
  Sender: FDA-Public Use
  Company Number: 2009S1005843

PATIENT
  Age: 70 Year
  Sex: Female
  Weight: 55 kg

DRUGS (7)
  1. PHOSPHO-SODA [Suspect]
     Active Substance: SODIUM PHOSPHATE, DIBASIC\SODIUM PHOSPHATE, MONOBASIC
     Indication: COLONOSCOPY
     Dosage: 2 IN 1 DAYS, ORAL
     Route: 048
     Dates: start: 20070903, end: 20070904
  2. HYDROCHLOROTHIAZIDE. [Concomitant]
     Active Substance: HYDROCHLOROTHIAZIDE
  3. LISINOPRIL. [Concomitant]
     Active Substance: LISINOPRIL
  4. ECOTRIN [Concomitant]
     Active Substance: ASPIRIN
  5. IRON [Concomitant]
     Active Substance: IRON
  6. COREG [Concomitant]
     Active Substance: CARVEDILOL
  7. VITAMIN B12 [Concomitant]
     Active Substance: CYANOCOBALAMIN

REACTIONS (15)
  - Metabolic acidosis [None]
  - Hyperphosphataemia [None]
  - Diarrhoea [None]
  - Renal cyst [None]
  - Hyperparathyroidism secondary [None]
  - Nephrogenic anaemia [None]
  - Anaemia [None]
  - Nephrolithiasis [None]
  - Renal failure chronic [None]
  - Renal tubular necrosis [None]
  - Cardiac failure congestive [None]
  - Renal artery stenosis [None]
  - Renal failure acute [None]
  - Hypovolaemia [None]
  - Normochromic normocytic anaemia [None]

NARRATIVE: CASE EVENT DATE: 20070908
